FAERS Safety Report 9885830 (Version 1)
Quarter: 2014Q1

REPORT INFORMATION
  Report Type: Spontaneous
  Country: US (occurrence: US)
  Receive Date: 20140210
  Receipt Date: 20140210
  Transmission Date: 20141002
  Serious: No
  Sender: FDA-Public Use
  Company Number: US-ENDO PHARMACEUTICALS INC.-FELO20130002

PATIENT
  Age: 63 Year
  Sex: Female

DRUGS (7)
  1. FELODIPINE ER TABLETS 5MG [Suspect]
     Indication: PRODUCT USED FOR UNKNOWN INDICATION
     Route: 048
     Dates: start: 201308
  2. METFORMIN HYDROCHLORIDE TABLETS 500MG [Concomitant]
     Indication: TYPE 2 DIABETES MELLITUS
     Route: 048
  3. JANUVIA [Concomitant]
     Indication: TYPE 2 DIABETES MELLITUS
     Route: 048
  4. COUMADIN [Concomitant]
     Indication: MITRAL VALVE REPLACEMENT
     Dosage: UNKNOWN
     Route: 048
  5. ATIVAN [Concomitant]
     Indication: PRODUCT USED FOR UNKNOWN INDICATION
     Route: 048
  6. VITAMIN D [Concomitant]
     Indication: VITAMIN SUPPLEMENTATION
     Dosage: UNKNOWN
     Route: 065
  7. FELODIPINE [Concomitant]
     Indication: PRODUCT USED FOR UNKNOWN INDICATION
     Dosage: UNKNOWN
     Route: 048
     Dates: start: 2005, end: 201308

REACTIONS (1)
  - Diarrhoea [Not Recovered/Not Resolved]
